APPROVED DRUG PRODUCT: DIPHENHYDRAMINE HYDROCHLORIDE
Active Ingredient: DIPHENHYDRAMINE HYDROCHLORIDE
Strength: 50MG
Dosage Form/Route: CAPSULE;ORAL
Application: A087914 | Product #001
Applicant: HALSEY DRUG CO INC
Approved: Jun 4, 1984 | RLD: No | RS: No | Type: DISCN